FAERS Safety Report 26215642 (Version 1)
Quarter: 2025Q4

REPORT INFORMATION
  Report Type: Spontaneous
  Country: US (occurrence: None)
  Receive Date: 20251231
  Receipt Date: 20251231
  Transmission Date: 20260117
  Serious: Yes (Death, Hospitalization, Other)
  Sender: APOTEX
  Company Number: US-APOTEX-2025AP034833

PATIENT
  Age: 70 Year
  Sex: Female

DRUGS (1)
  1. SOTALOL [Suspect]
     Active Substance: SOTALOL
     Indication: Product used for unknown indication
     Dosage: UNK
     Route: 065

REACTIONS (6)
  - Shock [Fatal]
  - Electrocardiogram QT prolonged [Fatal]
  - Bradycardia [Fatal]
  - Hypotension [Fatal]
  - Intentional overdose [Fatal]
  - Torsade de pointes [Recovered/Resolved]
